FAERS Safety Report 20023968 (Version 1)
Quarter: 2021Q4

REPORT INFORMATION
  Report Type: Spontaneous
  Country: US (occurrence: US)
  Receive Date: 20211102
  Receipt Date: 20211102
  Transmission Date: 20220304
  Serious: No
  Sender: FDA-Public Use
  Company Number: US-PFIZER INC-2021406547

PATIENT
  Age: 85 Year
  Sex: Male

DRUGS (1)
  1. LATANOPROST [Suspect]
     Active Substance: LATANOPROST
     Dosage: 125 MCG/ 2.5 ML
     Route: 061

REACTIONS (2)
  - Incorrect dose administered [Unknown]
  - Eye pain [Unknown]
